FAERS Safety Report 9440808 (Version 2)
Quarter: 2013Q3

REPORT INFORMATION
  Report Type: Spontaneous
  Country: GB (occurrence: None)
  Receive Date: 20130801
  Receipt Date: 20130815
  Transmission Date: 20140515
  Serious: Yes (Death, Hospitalization, Other)
  Sender: FDA-Public Use
  Company Number: AUR-APL-2013-06202

PATIENT
  Age: 48 Year
  Sex: Female

DRUGS (12)
  1. CITALOPRAM [Suspect]
     Indication: PRODUCT USED FOR UNKNOWN INDICATION
     Dosage: 40 MG (4 MG, 1 IN 1 D), ORAL
     Route: 048
  2. ONDANSETRON [Suspect]
     Indication: PRODUCT USED FOR UNKNOWN INDICATION
     Dosage: 12 MG (4 MG, 3 IN 1 D), UNKNOWN
     Dates: start: 20120626
  3. BECONASE [Concomitant]
  4. CHLORDIAZEPOXIDE (CHLORDIAZEPOXIDE) (CHLORDIAZEPOXIDE) [Concomitant]
  5. CHORPHENAMINE (CHLORPHENAMINE) [Concomitant]
  6. LEVOTHYROXINE (LEVOTHYROXINE) [Concomitant]
  7. LOPERAMIDE (LOPERAMIDE) [Concomitant]
  8. OMEPRAZOLE (OMEPRAZOLE) [Concomitant]
  9. ORAMORPH (MORPHINE SULFATE PENTAHYDRATE) [Concomitant]
  10. PARACETAMOL (PARACETAMOL) [Concomitant]
  11. SALBUTAMOL (SALBUTAMOL) [Concomitant]
  12. ZOPICLONE (ZOPICLONE) [Concomitant]

REACTIONS (16)
  - Sudden death [None]
  - Tremor [None]
  - Vomiting [None]
  - Diarrhoea [None]
  - Hallucination [None]
  - Pulmonary oedema [None]
  - Cerebral ischaemia [None]
  - Cardiopulmonary failure [None]
  - Hypokalaemia [None]
  - Hepatic steatosis [None]
  - Electrocardiogram QT prolonged [None]
  - Torsade de pointes [None]
  - Electrolyte imbalance [None]
  - Drug level increased [None]
  - Drug prescribing error [None]
  - Drug interaction [None]
